FAERS Safety Report 15029659 (Version 1)
Quarter: 2018Q2

REPORT INFORMATION
  Report Type: Spontaneous
  Country: US (occurrence: US)
  Receive Date: 20180529
  Receipt Date: 20180529
  Transmission Date: 20180711
  Serious: Yes (Hospitalization)
  Sender: FDA-Public Use
  Company Number: None

PATIENT
  Age: 72 Year
  Sex: Female

DRUGS (1)
  1. TASIGNA [Suspect]
     Active Substance: NILOTINIB
     Dates: start: 20180220, end: 20180529

REACTIONS (5)
  - Fatigue [None]
  - Syncope [None]
  - Pain [None]
  - Rash generalised [None]
  - Rash [None]

NARRATIVE: CASE EVENT DATE: 20180529
